FAERS Safety Report 9746252 (Version 2)
Quarter: 2013Q4

REPORT INFORMATION
  Report Type: Spontaneous
  Country: JP (occurrence: JP)
  Receive Date: 20131211
  Receipt Date: 20131219
  Transmission Date: 20140711
  Serious: No
  Sender: FDA-Public Use
  Company Number: JP-B.I. PHARMACEUTICALS,INC./RIDGEFIELD-2013-BI-41166NB

PATIENT
  Age: 82 Year
  Sex: Male

DRUGS (1)
  1. SPIRIVA [Suspect]
     Dosage: 5 MCG
     Route: 055
     Dates: start: 20130413, end: 20131130

REACTIONS (2)
  - Lip haemorrhage [Recovered/Resolved]
  - Product quality issue [Unknown]
